FAERS Safety Report 5779937-7 (Version None)
Quarter: 2008Q2

REPORT INFORMATION
  Report Type: 
  Country: None (occurrence: None)
  Receive Date: 20080616
  Receipt Date: 20080424
  Transmission Date: 20081010
  Serious: Yes (Other)
  Sender: FDA-Public Use
  Company Number: 08-205

PATIENT
  Age: 67 Year
  Sex: Female
  Weight: 112.4921 kg

DRUGS (3)
  1. ALEVE [Suspect]
     Indication: PAIN IN EXTREMITY
     Dosage: 880 MG, DAILY, ORAL
     Route: 048
     Dates: start: 20080413, end: 20080417
  2. TOPROL-XL [Concomitant]
  3. DIOVAN [Concomitant]

REACTIONS (1)
  - BLOOD PRESSURE INCREASED [None]
